FAERS Safety Report 21043693 (Version 1)
Quarter: 2022Q3

REPORT INFORMATION
  Report Type: Report from Study
  Country: JP (occurrence: JP)
  Receive Date: 20220705
  Receipt Date: 20220705
  Transmission Date: 20221027
  Serious: Yes (Death, Hospitalization, Other)
  Sender: FDA-Public Use
  Company Number: JP-CELGENE-JPN-20180203375

PATIENT
  Age: 70 Year
  Sex: Male
  Weight: 50 kg

DRUGS (18)
  1. POMALYST [Suspect]
     Active Substance: POMALIDOMIDE
     Indication: Plasma cell myeloma refractory
     Dosage: 4 MILLIGRAM
     Route: 048
     Dates: start: 20180129, end: 20180625
  2. LENADEX [Suspect]
     Active Substance: DEXAMETHASONE ACETATE
     Indication: Plasma cell myeloma refractory
     Dosage: 40 MILLIGRAM
     Route: 048
     Dates: start: 20180129, end: 20180625
  3. ISATUXIMAB [Suspect]
     Active Substance: ISATUXIMAB
     Indication: Plasma cell myeloma refractory
     Dosage: FREQUENCY TEXT: NOT PROVIDED?10 MILLIGRAM/KILOGRAM
     Route: 065
     Dates: start: 20180129
  4. LANSOPRAZOLE [Concomitant]
     Active Substance: LANSOPRAZOLE
     Indication: Prophylaxis
     Dosage: 15 MILLIGRAM
     Route: 048
     Dates: start: 20170208
  5. DAPSONE [Concomitant]
     Active Substance: DAPSONE
     Indication: Prophylaxis
     Dosage: 50 MILLIGRAM
     Route: 048
     Dates: start: 20170218
  6. CLARITHROMYCIN [Concomitant]
     Active Substance: CLARITHROMYCIN
     Indication: Chronic sinusitis
     Route: 048
     Dates: start: 20170324
  7. CARBOCYSTEINE [Concomitant]
     Active Substance: CARBOCYSTEINE
     Indication: Chronic sinusitis
     Dosage: 1500 MILLIGRAM
     Route: 048
     Dates: start: 20170324
  8. METHYLCOBALAMIN [Concomitant]
     Active Substance: METHYLCOBALAMIN
     Indication: Neuralgia
     Dosage: 1500 MICROGRAM
     Route: 048
     Dates: start: 20170530
  9. LYRICA [Concomitant]
     Active Substance: PREGABALIN
     Indication: Neuralgia
     Dosage: 150 MILLIGRAM
     Route: 048
     Dates: start: 20170613
  10. RINDERON V [Concomitant]
     Active Substance: BETAMETHASONE VALERATE
     Indication: Senile xerosis
     Route: 062
     Dates: start: 20171211
  11. HEPARINOID [Concomitant]
     Indication: Senile xerosis
     Route: 062
     Dates: start: 20171211
  12. CALONAL [Concomitant]
     Active Substance: ACETAMINOPHEN
     Indication: Cancer pain
     Dosage: 600 MILLIGRAM
     Route: 048
     Dates: start: 20171211
  13. CALONAL [Concomitant]
     Active Substance: ACETAMINOPHEN
     Indication: Antipyresis
     Dosage: FREQUENCY TEXT: PRN?600 MILLIGRAM
     Route: 048
     Dates: start: 20180625, end: 20180626
  14. ASPIRIN [Concomitant]
     Active Substance: ASPIRIN
     Indication: Prophylaxis
     Dosage: 100 MILLIGRAM
     Route: 048
     Dates: start: 20171229
  15. ZOSYN [Concomitant]
     Active Substance: PIPERACILLIN SODIUM\TAZOBACTAM SODIUM
     Indication: Prophylaxis
     Dosage: 1350 MILLIGRAM
     Route: 042
     Dates: start: 20180201, end: 20180205
  16. ZOSYN [Concomitant]
     Active Substance: PIPERACILLIN SODIUM\TAZOBACTAM SODIUM
     Indication: Pneumonia
     Dosage: 1350 MILLIGRAM
     Route: 042
     Dates: start: 20180205, end: 20180212
  17. Kenketsu Venoglobulin-IH [Concomitant]
     Indication: Hypogammaglobulinaemia
     Dosage: 5 GRAM
     Route: 042
     Dates: start: 20180626, end: 20180628
  18. ANORO ELLIPTA [Concomitant]
     Active Substance: UMECLIDINIUM BROMIDE\VILANTEROL TRIFENATATE
     Indication: Chronic obstructive pulmonary disease
     Route: 055
     Dates: start: 20170324

REACTIONS (4)
  - Chronic obstructive pulmonary disease [Fatal]
  - Bronchopulmonary aspergillosis [Recovered/Resolved]
  - Clavicle fracture [Not Recovered/Not Resolved]
  - Femur fracture [Not Recovered/Not Resolved]

NARRATIVE: CASE EVENT DATE: 20180208
